FAERS Safety Report 11399905 (Version 1)
Quarter: 2015Q3

REPORT INFORMATION
  Report Type: Spontaneous
  Country: US (occurrence: None)
  Receive Date: 20150819
  Receipt Date: 20150819
  Transmission Date: 20151125
  Serious: Yes (Death)
  Sender: FDA-Public Use
  Company Number: None

PATIENT
  Age: 65 Year
  Sex: Female

DRUGS (1)
  1. NEUPOGEN [Suspect]
     Active Substance: FILGRASTIM
     Indication: MALIGNANT NEOPLASM OF UTERINE ADNEXA
     Dosage: 300MCG, TIW, SQ
     Route: 058
     Dates: start: 20150219, end: 20150814

REACTIONS (1)
  - Internal haemorrhage [None]

NARRATIVE: CASE EVENT DATE: 20150814
